FAERS Safety Report 11673916 (Version 2)
Quarter: 2015Q4

REPORT INFORMATION
  Report Type: Spontaneous
  Country: JP (occurrence: JP)
  Receive Date: 20151028
  Receipt Date: 20151105
  Transmission Date: 20160304
  Serious: Yes (Hospitalization, Other)
  Sender: FDA-Public Use
  Company Number: JP-WATSON-2015-23017

PATIENT
  Age: 78 Year
  Sex: Female

DRUGS (3)
  1. RISPERIDONE (UNKNOWN) [Suspect]
     Active Substance: RISPERIDONE
     Indication: MAJOR DEPRESSION
     Dosage: 1 MG, DAILY
     Route: 065
  2. ESCITALOPRAM [Suspect]
     Active Substance: ESCITALOPRAM OXALATE
     Indication: MAJOR DEPRESSION
     Dosage: 10 MG, DAILY
     Route: 065
  3. NITRAZEPAM (UNKNOWN) [Suspect]
     Active Substance: NITRAZEPAM
     Indication: MAJOR DEPRESSION
     Dosage: 5 MG, DAILY
     Route: 065

REACTIONS (1)
  - Bradykinesia [Unknown]
